FAERS Safety Report 21825608 (Version 2)
Quarter: 2023Q1

REPORT INFORMATION
  Report Type: Spontaneous
  Country: US (occurrence: US)
  Receive Date: 20230105
  Receipt Date: 20230207
  Transmission Date: 20230418
  Serious: Yes (Hospitalization, Other)
  Sender: FDA-Public Use
  Company Number: US-BRISTOL-MYERS SQUIBB COMPANY-2023-000970

PATIENT
  Age: 64 Year
  Sex: Female
  Weight: 98.88 kg

DRUGS (1)
  1. POMALYST [Suspect]
     Active Substance: POMALIDOMIDE
     Indication: Plasma cell myeloma
     Dosage: 21D ON 7D OFF (3W, 1 W OFF)
     Route: 048

REACTIONS (3)
  - Thrombosis [Unknown]
  - Pneumonia [Unknown]
  - Tremor [Unknown]

NARRATIVE: CASE EVENT DATE: 20230101
